FAERS Safety Report 8685901 (Version 2)
Quarter: 2014Q1

REPORT INFORMATION
  Report Type: Spontaneous
  Country: US (occurrence: US)
  Receive Date: 20120726
  Receipt Date: 20140206
  Transmission Date: 20141002
  Serious: No
  Sender: FDA-Public Use
  Company Number: US-ASTRAZENECA-2011SE54318

PATIENT
  Age: 70 Year
  Sex: Female
  Weight: 74.8 kg

DRUGS (5)
  1. SEROQUEL [Suspect]
     Indication: SLEEP DISORDER
     Route: 048
  2. SEROQUEL [Suspect]
     Indication: SLEEP DISORDER
     Route: 065
     Dates: start: 2012
  3. CYMBALTA [Concomitant]
  4. OTHER MEDICATIONS [Concomitant]
     Indication: BLOOD PRESSURE ABNORMAL
  5. OTHER MEDICATIONS [Concomitant]
     Indication: DEPRESSION

REACTIONS (4)
  - Depression [Unknown]
  - Hyperhidrosis [Not Recovered/Not Resolved]
  - Increased appetite [Unknown]
  - Off label use [Unknown]
